FAERS Safety Report 6917309-X (Version None)
Quarter: 2010Q3

REPORT INFORMATION
  Report Type: 
  Country: None (occurrence: None)
  Receive Date: 20100810
  Receipt Date: 20100727
  Transmission Date: 20110219
  Serious: Yes (Life-Threatening, Hospitalization)
  Sender: FDA-Public Use
  Company Number: JP-ELI_LILLY_AND_COMPANY-JP201007000802

PATIENT
  Age: 20 Year
  Sex: Female

DRUGS (1)
  1. ZYPREXA [Suspect]
     Indication: BORDERLINE PERSONALITY DISORDER
     Dosage: 10 MG, DAILY (1/D)
     Route: 048
     Dates: start: 20100128, end: 20100703

REACTIONS (6)
  - ALTERED STATE OF CONSCIOUSNESS [None]
  - DELIRIUM [None]
  - HEART RATE INCREASED [None]
  - INTENTIONAL OVERDOSE [None]
  - OFF LABEL USE [None]
  - SUICIDE ATTEMPT [None]
